FAERS Safety Report 5603448-2 (Version None)
Quarter: 2008Q1

REPORT INFORMATION
  Report Type: 
  Country: None (occurrence: None)
  Receive Date: 20080123
  Receipt Date: 20070403
  Transmission Date: 20080703
  Serious: Yes (Hospitalization)
  Sender: FDA-Public Use
  Company Number: T08-USA-00211-01

PATIENT
  Age: 27 Year
  Sex: Female
  Weight: 91 kg

DRUGS (5)
  1. CERVIDIL [Suspect]
     Indication: LABOUR INDUCTION
     Dosage: 10 MG ONCE VG
     Route: 067
     Dates: start: 20070313, end: 20070314
  2. GLYBURIDE [Concomitant]
  3. INSULIN [Concomitant]
  4. LABETALOL HCL [Concomitant]
  5. MAGNESIUM [Concomitant]

REACTIONS (3)
  - ARRESTED LABOUR [None]
  - CAESAREAN SECTION [None]
  - DRUG EXPOSURE DURING PREGNANCY [None]
